FAERS Safety Report 6216574-4 (Version None)
Quarter: 2009Q2

REPORT INFORMATION
  Report Type: 
  Country: None (occurrence: None)
  Receive Date: 20090605
  Receipt Date: 20090529
  Transmission Date: 20091009
  Serious: Yes (Hospitalization, Other)
  Sender: FDA-Public Use
  Company Number: IE-ABBOTT-09P-229-0577704-00

PATIENT

DRUGS (1)
  1. WARFARIN SODIUM [Suspect]
     Indication: EMBOLISM VENOUS
     Dosage: NOT REPORTED

REACTIONS (1)
  - HAEMORRHAGE [None]
